FAERS Safety Report 23702784 (Version 1)
Quarter: 2024Q2

REPORT INFORMATION
  Report Type: Spontaneous
  Country: US (occurrence: None)
  Receive Date: 20240403
  Receipt Date: 20240403
  Transmission Date: 20240715
  Serious: Yes (Hospitalization)
  Sender: FDA-Public Use
  Company Number: None

PATIENT
  Age: 77 Year
  Sex: Male
  Weight: 68.9 kg

DRUGS (6)
  1. FLUOROURACIL [Suspect]
     Active Substance: FLUOROURACIL
     Indication: Enterocolitis
     Dates: start: 20240202
  2. Irinotecan ( CPT-11, Camptosar)( 616348) [Concomitant]
  3. Leucovorin calcium(3590) [Concomitant]
  4. Nivolumab(748726) [Concomitant]
  5. OXAL!platin (Eloxatin)(266046) [Concomitant]
  6. Adenocarcinorna of the esophagus [Concomitant]

REACTIONS (2)
  - Dehydration [None]
  - Enterocolitis [None]

NARRATIVE: CASE EVENT DATE: 20240401
